FAERS Safety Report 21801603 (Version 1)
Quarter: 2022Q4

REPORT INFORMATION
  Report Type: Spontaneous
  Country: DE (occurrence: DE)
  Receive Date: 20221230
  Receipt Date: 20221230
  Transmission Date: 20230112
  Serious: Yes (Other)
  Sender: FDA-Public Use
  Company Number: DE-009507513-2212DEU010916

PATIENT
  Sex: Female

DRUGS (1)
  1. KEYTRUDA [Suspect]
     Active Substance: PEMBROLIZUMAB
     Indication: Malignant melanoma
     Dosage: ONE INFUSION

REACTIONS (4)
  - Syncope [Recovered/Resolved]
  - Syncope [Unknown]
  - Mental impairment [Unknown]
  - Hypersensitivity [Unknown]
